FAERS Safety Report 4801824-9 (Version None)
Quarter: 2005Q3

REPORT INFORMATION
  Report Type: 
  Country: None (occurrence: None)
  Receive Date: 20050929
  Receipt Date: 20050620
  Transmission Date: 20060218
  Serious: Yes (Hospitalization)
  Sender: FDA-Public Use
  Company Number: 05P-163-0295195-00

PATIENT
  Age: 77 Year
  Sex: Female

DRUGS (8)
  1. HUMIRA [Suspect]
     Indication: RHEUMATOID ARTHRITIS
     Dosage: 40 MG, 1 IN 1 WK, SUBCUTANEOUS
     Route: 058
     Dates: start: 20030101, end: 20050609
  2. PREDNISONE [Concomitant]
  3. CYMBALTA [Concomitant]
  4. LEVOTHYROXINE SODIUM [Concomitant]
  5. SANCTURA [Concomitant]
  6. MULTI-VITAMINS [Concomitant]
  7. TIMOLOL MALEATE [Concomitant]
  8. OXYCOCET [Concomitant]

REACTIONS (3)
  - BACK PAIN [None]
  - PLEURISY [None]
  - PNEUMONIA [None]
